FAERS Safety Report 7740269-9 (Version None)
Quarter: 2011Q3

REPORT INFORMATION
  Report Type: 
  Country: None (occurrence: None)
  Receive Date: 20110909
  Receipt Date: 20110831
  Transmission Date: 20111222
  Serious: Yes (Hospitalization)
  Sender: FDA-Public Use
  Company Number: SG-ELI_LILLY_AND_COMPANY-SG201107005756

PATIENT
  Sex: Female
  Weight: 39.6 kg

DRUGS (8)
  1. GEMCITABINE HYDROCHLORIDE [Suspect]
     Indication: NON-SMALL CELL LUNG CANCER STAGE IV
     Dosage: 1675 MG, OTHER
     Dates: start: 20110714, end: 20110721
  2. CISPLATIN [Suspect]
     Dosage: UNK
     Dates: start: 20110811
  3. SPAN-K [Concomitant]
     Dosage: 600 MG, BID
     Route: 048
     Dates: start: 20110711
  4. DEXAMETHASONE [Concomitant]
     Dosage: 4 MG, BID
     Dates: start: 20110714
  5. CISPLATIN [Suspect]
     Indication: NON-SMALL CELL LUNG CANCER STAGE IV
     Dosage: 101 MG, OTHER
     Dates: start: 20110714, end: 20110721
  6. ONDANSERTRON HYDROCHLORIDE [Concomitant]
     Dosage: 8 MG, BID
     Dates: start: 20110714
  7. GEMCITABINE HYDROCHLORIDE [Suspect]
     Dosage: UNK
     Dates: start: 20110811
  8. KETOTOP [Concomitant]
     Dosage: UNK, BID
     Route: 062
     Dates: start: 20110711

REACTIONS (9)
  - THROMBOCYTOPENIA [None]
  - GASTRIC ULCER [None]
  - UPPER GASTROINTESTINAL HAEMORRHAGE [None]
  - NEUTROPENIA [None]
  - DEHYDRATION [None]
  - BLOOD POTASSIUM DECREASED [None]
  - DUODENAL ULCER [None]
  - ANAEMIA [None]
  - BLOOD SODIUM DECREASED [None]
